FAERS Safety Report 6909102-9 (Version None)
Quarter: 2010Q3

REPORT INFORMATION
  Report Type: 
  Country: None (occurrence: None)
  Receive Date: 20100805
  Receipt Date: 20100728
  Transmission Date: 20110219
  Serious: Yes (Other)
  Sender: FDA-Public Use
  Company Number: US-RB-010327-10

PATIENT
  Age: 37 Year
  Sex: Female

DRUGS (7)
  1. SUBUTEX [Suspect]
     Indication: DRUG DEPENDENCE
     Route: 060
     Dates: start: 20100521, end: 20100526
  2. SUBOXONE [Suspect]
     Indication: DRUG DEPENDENCE
     Route: 060
     Dates: start: 20100527
  3. DILANTIN [Concomitant]
     Indication: CONVULSION
     Dosage: DOSING DETAILS UNKNOWN
     Route: 065
  4. LYRICA [Concomitant]
     Indication: FIBROMYALGIA
     Dosage: DOSING DETAILS UNKNOWN
     Route: 065
  5. ZANAFLEX [Concomitant]
     Indication: MUSCLE SPASMS
     Dosage: DOSING DETAILS UNKNOWN
     Route: 065
  6. BUSPAR [Concomitant]
     Indication: ANXIETY
     Dosage: DOSING DETAILS UNKNOWN
     Route: 065
  7. DETROL [Concomitant]
     Indication: HYPERTONIC BLADDER
     Dosage: UNKNOWN DOSING DETAILS
     Route: 065

REACTIONS (1)
  - CONVULSION [None]
